FAERS Safety Report 11384512 (Version 1)
Quarter: 2015Q3

REPORT INFORMATION
  Report Type: Spontaneous
  Country: US (occurrence: US)
  Receive Date: 20150811
  Receipt Date: 20150811
  Transmission Date: 20151125
  Serious: No
  Sender: FDA-Public Use
  Company Number: US-ELI_LILLY_AND_COMPANY-US201101006374

PATIENT
  Sex: Male
  Weight: 86.17 kg

DRUGS (1)
  1. CIALIS [Suspect]
     Active Substance: TADALAFIL
     Indication: ERECTILE DYSFUNCTION
     Dosage: 20 MG, AS NEEDED
     Dates: start: 20110118, end: 20110118

REACTIONS (2)
  - Diarrhoea [Recovered/Resolved]
  - Drug ineffective [Recovered/Resolved]
